FAERS Safety Report 9699746 (Version 3)
Quarter: 2013Q4

REPORT INFORMATION
  Report Type: Spontaneous
  Country: US (occurrence: US)
  Receive Date: 20131120
  Receipt Date: 20131210
  Transmission Date: 20140711
  Serious: Yes (Hospitalization, Other)
  Sender: FDA-Public Use
  Company Number: US-TEVA-369789USA

PATIENT
  Age: 19 Year
  Sex: Female

DRUGS (1)
  1. PARAGARD 380A [Suspect]
     Indication: CONTRACEPTION
     Route: 015
     Dates: start: 20120525, end: 20120813

REACTIONS (3)
  - Uterine perforation [Recovered/Resolved]
  - Pain [Unknown]
  - Device dislocation [Recovered/Resolved]
